FAERS Safety Report 6692489-2 (Version None)
Quarter: 2010Q2

REPORT INFORMATION
  Report Type: 
  Country: None (occurrence: None)
  Receive Date: 20100422
  Receipt Date: 20100412
  Transmission Date: 20101027
  Serious: Yes (Life-Threatening, Other)
  Sender: FDA-Public Use
  Company Number: B0601823A

PATIENT
  Sex: Female

DRUGS (2)
  1. ARIXTRA [Suspect]
     Route: 058
     Dates: start: 20090617, end: 20090625
  2. LOVENOX [Concomitant]
     Route: 065
     Dates: start: 20090228, end: 20090609

REACTIONS (2)
  - INTRA-ABDOMINAL HAEMATOMA [None]
  - OFF LABEL USE [None]
